FAERS Safety Report 4523968-1 (Version None)
Quarter: 2004Q4

REPORT INFORMATION
  Report Type: 
  Country: None (occurrence: None)
  Receive Date: 20041210
  Receipt Date: 20041203
  Transmission Date: 20050328
  Serious: Yes (Other)
  Sender: FDA-Public Use
  Company Number: JP-ABBOTT-04P-087-0282331-00

PATIENT
  Age: 75 Year
  Sex: Male

DRUGS (4)
  1. LIPANTIL [Suspect]
     Indication: HYPERLIPIDAEMIA
     Route: 048
     Dates: start: 20030901, end: 20040601
  2. ATORVASTATIN [Concomitant]
     Indication: DRUG USE FOR UNKNOWN INDICATION
     Dates: start: 20030901, end: 20040601
  3. AMLODIPINE BESYLATE [Concomitant]
     Indication: DRUG USE FOR UNKNOWN INDICATION
     Dates: start: 20030901, end: 20040601
  4. GLYBURIDE [Concomitant]
     Indication: DRUG USE FOR UNKNOWN INDICATION
     Dates: start: 20030901, end: 20040601

REACTIONS (2)
  - JAUNDICE [None]
  - MALAISE [None]
